FAERS Safety Report 11617914 (Version 4)
Quarter: 2016Q1

REPORT INFORMATION
  Report Type: Other
  Country: US (occurrence: US)
  Receive Date: 20151009
  Receipt Date: 20160219
  Transmission Date: 20160525
  Serious: Yes (Hospitalization)
  Sender: FDA-Public Use
  Company Number: US-KADMON PHARMACEUTICALS, LLC-KAD201510-003468

PATIENT
  Age: 29 Year
  Sex: Female

DRUGS (3)
  1. PRENATAL VITAMINS [Concomitant]
     Active Substance: VITAMINS
     Indication: VITAMIN SUPPLEMENTATION
     Dates: start: 20141210
  2. SOVALDI [Suspect]
     Active Substance: SOFOSBUVIR
  3. RIBAVIRIN. [Suspect]
     Active Substance: RIBAVIRIN

REACTIONS (3)
  - Pre-eclampsia [Recovered/Resolved]
  - Premature labour [Unknown]
  - Exposure via partner [Unknown]

NARRATIVE: CASE EVENT DATE: 20150724
